FAERS Safety Report 24178302 (Version 1)
Quarter: 2024Q3

REPORT INFORMATION
  Report Type: Spontaneous
  Country: US (occurrence: None)
  Receive Date: 20240805
  Receipt Date: 20240805
  Transmission Date: 20241017
  Serious: No
  Sender: Public
  Company Number: None

PATIENT

DRUGS (3)
  1. EPHEDRINE [Suspect]
     Active Substance: EPHEDRINE
  2. EPINEPHRINE [Suspect]
     Active Substance: EPINEPHRINE
  3. RETACRIT [Suspect]
     Active Substance: EPOETIN ALFA-EPBX

REACTIONS (3)
  - Product packaging confusion [None]
  - Wrong product stored [None]
  - Wrong product administered [None]
